FAERS Safety Report 10090511 (Version 2)
Quarter: 2014Q2

REPORT INFORMATION
  Report Type: Report from Study
  Country: US (occurrence: US)
  Receive Date: 20140421
  Receipt Date: 20140523
  Transmission Date: 20141212
  Serious: Yes (Death, Hospitalization, Other)
  Sender: FDA-Public Use
  Company Number: US-ASTELLAS-2014US003843

PATIENT
  Age: 75 Year
  Sex: Female

DRUGS (6)
  1. ERLOTINIB [Suspect]
     Indication: LUNG NEOPLASM MALIGNANT
     Route: 048
     Dates: start: 20090423, end: 20140413
  2. LOPRESSOR [Concomitant]
     Indication: HYPERTENSION
     Dosage: UNK UNK, ONCE DAILY
     Route: 048
  3. PLAVIX [Concomitant]
     Indication: PRODUCT USED FOR UNKNOWN INDICATION
     Dosage: 75 (UNIT NOT REPORTED), ONCE DAILY
     Route: 048
  4. LASIX                              /00032601/ [Concomitant]
     Indication: CARDIAC FAILURE CONGESTIVE
     Dosage: 40 (UNIT NOT REPORTED), ONCE DAILY
     Route: 048
  5. ASPIRIN [Concomitant]
     Indication: CEREBROVASCULAR ACCIDENT
     Dosage: 85 (UNIT NOT REPORTED), ONCE DAILY
     Route: 048
  6. EXFORGE [Concomitant]
     Indication: PRODUCT USED FOR UNKNOWN INDICATION
     Dosage: UNK UNK, UNKNOWN FREQ.
     Route: 065

REACTIONS (5)
  - Cardiac failure congestive [Fatal]
  - Laceration [Unknown]
  - Impaired healing [Unknown]
  - Fracture [Unknown]
  - Pneumonia [Unknown]
